FAERS Safety Report 8850065 (Version 2)
Quarter: 2012Q4

REPORT INFORMATION
  Report Type: 
  Country: FR (occurrence: FR)
  Receive Date: 20121019
  Receipt Date: 20121228
  Transmission Date: 20130627
  Serious: Yes (Hospitalization, Other)
  Sender: FDA-Public Use
  Company Number: FR-EISAI INC-E3810-06005-SPO-FR

PATIENT
  Age: 86 None
  Sex: Female

DRUGS (18)
  1. PARIET (RABEPRAZOLE) [Suspect]
     Dosage: UNKNOWN
     Route: 048
     Dates: start: 20120710
  2. IMOVANE [Suspect]
     Dosage: UNKNOWN
     Dates: start: 20120704
  3. SERESTA [Suspect]
     Dosage: UNKNOWN
     Dates: start: 20120713
  4. ARIXTRA [Suspect]
     Dosage: UNKNOWN
     Dates: start: 20120704
  5. CIPROFLOXACIN HYDROCHLORIDE [Suspect]
     Dosage: UNKNOWN
     Dates: start: 20120713
  6. AUGMENTIN [Suspect]
     Dosage: UNKNOWN
     Dates: start: 20120713
  7. LOVENOX [Suspect]
     Dosage: UNKNOWN
     Dates: start: 20120717, end: 20120723
  8. LOVENOX [Suspect]
     Dosage: UNKNOWN
     Dates: start: 20120628, end: 20120704
  9. SINTROM [Concomitant]
  10. HAVLANE [Concomitant]
  11. FLECAINIDE ACETATE [Concomitant]
  12. LEVOTHYROXINE [Concomitant]
  13. DAKIN [Concomitant]
     Indication: MYCOSIS
     Dates: start: 20120725
  14. CETIRIZINE [Concomitant]
     Indication: MYCOSIS
     Dates: start: 20120727
  15. ATARAX [Concomitant]
     Indication: MYCOSIS
     Dates: start: 20120805
  16. POLARAMINE [Concomitant]
     Indication: MYCOSIS
     Dates: start: 20120805
  17. SOLUPRED [Concomitant]
     Indication: MYCOSIS
     Dates: start: 20120805
  18. PEVARYL [Concomitant]
     Indication: MYCOSIS
     Dates: start: 20120725

REACTIONS (5)
  - Pulmonary oedema [Unknown]
  - Dermatitis exfoliative [Recovered/Resolved]
  - Erythema [Recovered/Resolved]
  - Drug reaction with eosinophilia and systemic symptoms [Recovered/Resolved with Sequelae]
  - Alopecia [Recovering/Resolving]
